FAERS Safety Report 8834477 (Version 1)
Quarter: 2012Q4

REPORT INFORMATION
  Report Type: Spontaneous
  Country: FR (occurrence: None)
  Receive Date: 20120914
  Receipt Date: 20120914
  Transmission Date: 20130627
  Serious: Yes (Other)
  Sender: FDA-Public Use
  Company Number: LIT-093-12-FR

PATIENT
  Age: 4 Year
  Sex: Male

DRUGS (2)
  1. IMMUNOGLOBULIN [Suspect]
     Indication: KAWASAKI^S DISEASE
     Route: 042
  2. ACETYLSALICYLIC ACID [Concomitant]

REACTIONS (2)
  - Nephrotic syndrome [None]
  - Skin exfoliation [None]
